FAERS Safety Report 5007936-1 (Version None)
Quarter: 2006Q2

REPORT INFORMATION
  Report Type: 
  Country: None (occurrence: None)
  Receive Date: 20060518
  Receipt Date: 20060508
  Transmission Date: 20061013
  Serious: Yes (Other)
  Sender: FDA-Public Use
  Company Number: GXKR2006GB02613

PATIENT
  Age: 78 Year
  Sex: Female

DRUGS (3)
  1. PROPRANOLOL [Suspect]
     Dosage: 2.5 MG
  2. HYDRALAZINE HCL [Suspect]
  3. BENDROFLUAZIDE (BENDROFLUMETHIAZIDE) [Suspect]
     Dosage: 2.5 MG

REACTIONS (1)
  - HYPOKALAEMIA [None]
